FAERS Safety Report 5391046-8 (Version None)
Quarter: 2007Q3

REPORT INFORMATION
  Report Type: 
  Country: None (occurrence: None)
  Receive Date: 20070717
  Receipt Date: 20070702
  Transmission Date: 20080115
  Serious: Yes (Hospitalization)
  Sender: FDA-Public Use
  Company Number: 2007S1004913

PATIENT
  Age: 78 Year
  Sex: Female
  Weight: 55.4 kg

DRUGS (20)
  1. SUNITINIB [Suspect]
     Indication: SQUAMOUS CELL CARCINOMA
     Dosage: 50 MG;DAILY ; 50 MG;DAILY
     Dates: start: 20070221
  2. DIGOXIN [Suspect]
     Dosage: 0.25 MG;DAILY
  3. LEVOTHYROXINE SODIUM [Suspect]
  4. LISINOPRIL [Suspect]
     Indication: HYPERTENSION
     Dosage: 20 MG;DAILY
     Dates: start: 20070215
  5. FOSAMAX [Suspect]
     Dosage: 70 MG;WEEKLY
  6. HYDROCHLOROTHIAZIDE [Suspect]
     Dosage: 25 MG;AT BEDTIME
  7. HYDROCODONE BITARTRATE [Suspect]
  8. ISOSORBIDE DINITRATE [Suspect]
     Dosage: 20 MG;TWICE A DAY
  9. LIPITOR [Suspect]
     Dosage: 20 MG;DAILY
  10. LORAZEPAM [Suspect]
     Dosage: 1 MG;Q6H
  11. OMEPRAZOLE [Suspect]
     Dosage: 20 MG;DAILY
  12. CORTISONE ACETATE TAB [Suspect]
     Dates: start: 20070219
  13. GLUCOSAMIN [Suspect]
     Dosage: 1500 MG;DAILY
  14. MULTI-VITAMIN [Suspect]
     Dosage: DAILY
  15. GLYCEROL 2.6% [Suspect]
  16. OMEGA 3 [Suspect]
     Dosage: 1000 MG;DAILY
  17. BIOTENE [Suspect]
  18. OSCAL 500-D [Suspect]
     Dosage: 500 MG;DAILY
  19. OCEAN NASAL [Suspect]
  20. TIGAN [Concomitant]

REACTIONS (11)
  - ASTHENIA [None]
  - BLOOD GLUCOSE INCREASED [None]
  - CHOLECYSTITIS [None]
  - CHOLELITHIASIS [None]
  - FATIGUE [None]
  - HEADACHE [None]
  - LETHARGY [None]
  - LIPASE INCREASED [None]
  - MALAISE [None]
  - NAUSEA [None]
  - VOMITING [None]
